FAERS Safety Report 15272736 (Version 2)
Quarter: 2018Q3

REPORT INFORMATION
  Report Type: Spontaneous
  Country: US (occurrence: US)
  Receive Date: 20180813
  Receipt Date: 20180917
  Transmission Date: 20181010
  Serious: Yes (Other)
  Sender: FDA-Public Use
  Company Number: US-PFIZER INC-2018325079

PATIENT
  Sex: Male

DRUGS (4)
  1. BUPIVICAINE [Suspect]
     Active Substance: BUPIVACAINE
     Dosage: UNK
     Route: 008
     Dates: start: 20170424, end: 20170424
  2. DEPO?MEDROL [Suspect]
     Active Substance: METHYLPREDNISOLONE ACETATE
     Dosage: UNK
     Route: 008
     Dates: start: 20170424, end: 20170424
  3. DEPO?MEDROL [Suspect]
     Active Substance: METHYLPREDNISOLONE ACETATE
     Dosage: UNK
     Route: 008
     Dates: start: 20170523, end: 20170523
  4. BUPIVICAINE [Suspect]
     Active Substance: BUPIVACAINE
     Dosage: UNK
     Route: 008
     Dates: start: 20170523, end: 20170523

REACTIONS (3)
  - Mycobacterium abscessus infection [Unknown]
  - Atypical mycobacterial infection [Unknown]
  - Nosocomial infection [Unknown]
